FAERS Safety Report 5346785-1 (Version None)
Quarter: 2007Q2

REPORT INFORMATION
  Report Type: 
  Country: None (occurrence: None)
  Receive Date: 20070503
  Receipt Date: 20060914
  Transmission Date: 20071010
  Serious: Yes (Hospitalization)
  Sender: FDA-Public Use
  Company Number: 2006RL000339

PATIENT
  Age: 74 Year
  Sex: Female
  Weight: 89.8122 kg

DRUGS (7)
  1. DYNACIRC CR [Suspect]
     Indication: HYPERTENSION
     Dosage: 10 MG;BID;PO
     Route: 048
     Dates: start: 20050901, end: 20060901
  2. ALTACE [Concomitant]
  3. COREG [Concomitant]
  4. LANTUS [Concomitant]
  5. ASPIRIN [Concomitant]
  6. LESCOL XL [Concomitant]
  7. BETA BLOCKING AGENTS [Concomitant]

REACTIONS (2)
  - OEDEMA PERIPHERAL [None]
  - WEIGHT INCREASED [None]
